FAERS Safety Report 5208647-X (Version None)
Quarter: 2007Q1

REPORT INFORMATION
  Report Type: 
  Country: None (occurrence: None)
  Receive Date: 20070116
  Receipt Date: 20070102
  Transmission Date: 20070707
  Serious: Yes (Hospitalization)
  Sender: FDA-Public Use
  Company Number: PHBS2007DE00548

PATIENT
  Age: 74 Year
  Sex: Male

DRUGS (3)
  1. CYCLOSPORINE [Suspect]
     Indication: APLASTIC ANAEMIA
     Dosage: 150 MG, BID
  2. BISOPROLOL FUMARATE [Concomitant]
     Dosage: 1.25 MG, QD
  3. BLOOD AND RELATED PRODUCTS [Concomitant]
     Indication: HAEMOLYSIS
     Dosage: ONCE A MONTH
     Route: 042

REACTIONS (27)
  - BLOOD CREATININE INCREASED [None]
  - BLOOD LACTATE DEHYDROGENASE INCREASED [None]
  - CREATININE RENAL CLEARANCE DECREASED [None]
  - DIARRHOEA [None]
  - DYSPNOEA [None]
  - ESCHERICHIA URINARY TRACT INFECTION [None]
  - GLOMERULOSCLEROSIS [None]
  - HAEMATURIA [None]
  - HAEMOGLOBINURIA [None]
  - HAEMOLYSIS [None]
  - HAEMOSIDEROSIS [None]
  - HAPTOGLOBIN INCREASED [None]
  - HYPERURICAEMIA [None]
  - HYPOTENSION [None]
  - HYPOVOLAEMIA [None]
  - IRON OVERLOAD [None]
  - KIDNEY SMALL [None]
  - NEPHROSCLEROSIS [None]
  - NORMOCHROMIC NORMOCYTIC ANAEMIA [None]
  - OLIGURIA [None]
  - PROTEINURIA [None]
  - RENAL FAILURE ACUTE [None]
  - RENAL TUBULAR DISORDER [None]
  - RENAL TUBULAR NECROSIS [None]
  - SERUM FERRITIN INCREASED [None]
  - URINE SODIUM DECREASED [None]
  - WHITE BLOOD CELLS URINE POSITIVE [None]
